FAERS Safety Report 13024997 (Version 3)
Quarter: 2016Q4

REPORT INFORMATION
  Report Type: Spontaneous
  Country: IT (occurrence: IT)
  Receive Date: 20161213
  Receipt Date: 20161228
  Transmission Date: 20170207
  Serious: Yes (Hospitalization)
  Sender: FDA-Public Use
  Company Number: PHHY2016IT166680

PATIENT
  Age: 83 Year
  Sex: Female

DRUGS (1)
  1. OLANZAPINE. [Suspect]
     Active Substance: OLANZAPINE
     Indication: PRODUCT USED FOR UNKNOWN INDICATION
     Dosage: 5 MG, QD
     Route: 048
     Dates: start: 20160922, end: 20160923

REACTIONS (5)
  - Drug dispensing error [Unknown]
  - Incorrect dose administered [Unknown]
  - Sopor [Unknown]
  - Overdose [Unknown]
  - Asthenia [Unknown]

NARRATIVE: CASE EVENT DATE: 20160922
